FAERS Safety Report 10559660 (Version 2)
Quarter: 2014Q4

REPORT INFORMATION
  Report Type: Spontaneous
  Country: US (occurrence: US)
  Receive Date: 20141103
  Receipt Date: 20141202
  Transmission Date: 20150529
  Serious: No
  Sender: FDA-Public Use
  Company Number: US-009507513-1411USA000199

PATIENT
  Age: 22 Year
  Sex: Female
  Weight: 67.12 kg

DRUGS (2)
  1. NEXPLANON [Suspect]
     Active Substance: ETONOGESTREL
     Indication: CONTRACEPTION
     Dosage: TOTAL DAILY DOSE: 193-1145PG/ML
     Route: 058
     Dates: start: 20141029, end: 20141029
  2. NEXPLANON [Suspect]
     Active Substance: ETONOGESTREL
     Dosage: TOTAL DAILY DOSE: 193-1145PG/ML
     Route: 058
     Dates: start: 20141029

REACTIONS (4)
  - Device difficult to use [Recovered/Resolved]
  - No adverse event [Unknown]
  - Product quality issue [Unknown]
  - Device deployment issue [Recovered/Resolved]

NARRATIVE: CASE EVENT DATE: 20141029
